FAERS Safety Report 7389537-3 (Version None)
Quarter: 2011Q2

REPORT INFORMATION
  Report Type: 
  Country: None (occurrence: None)
  Receive Date: 20110401
  Receipt Date: 20110318
  Transmission Date: 20111010
  Serious: Yes (Hospitalization)
  Sender: FDA-Public Use
  Company Number: PHHO2011AU04972

PATIENT
  Sex: Male
  Weight: 66 kg

DRUGS (3)
  1. AMN107 [Suspect]
     Dosage: UNK
     Dates: start: 20110322
  2. AMN107 [Suspect]
     Indication: CHRONIC MYELOID LEUKAEMIA
     Dosage: 800 MG, UNK
     Route: 048
     Dates: start: 20100720, end: 20110310
  3. STI571/CGP57148B [Suspect]
     Indication: CHRONIC MYELOID LEUKAEMIA
     Dosage: 600 MG, UNK
     Route: 048
     Dates: start: 20100406, end: 20100719

REACTIONS (3)
  - HYDROCELE [None]
  - SCROTAL SWELLING [None]
  - HYDROCELE OPERATION [None]
